FAERS Safety Report 10552132 (Version 1)
Quarter: 2014Q4

REPORT INFORMATION
  Report Type: Spontaneous
  Country: US (occurrence: None)
  Receive Date: 20141023
  Receipt Date: 20141023
  Transmission Date: 20150529
  Serious: No
  Sender: FDA-Public Use
  Company Number: AP356-01321-SPO-US

PATIENT
  Age: 60 Year
  Sex: Female
  Weight: 131.4 kg

DRUGS (8)
  1. METFORMIN [Concomitant]
     Active Substance: METFORMIN HYDROCHLORIDE
  2. LORAZEPAM. [Concomitant]
     Active Substance: LORAZEPAM
  3. ZETIA [Concomitant]
     Active Substance: EZETIMIBE
  4. POTASSIUM [Concomitant]
     Active Substance: POTASSIUM
  5. BLOOD PRESSURE MEDICATIONS (ANTIHYPERTENSIVES) [Concomitant]
  6. BELVIQ [Suspect]
     Active Substance: LORCASERIN HYDROCHLORIDE
     Indication: WEIGHT DECREASED
     Route: 048
     Dates: start: 201405, end: 2014
  7. VITAMIN D (ERGOCALCIFEROL) [Concomitant]
     Active Substance: ERGOCALCIFEROL
  8. WELLBUTRIN [Concomitant]
     Active Substance: BUPROPION HYDROCHLORIDE

REACTIONS (2)
  - Drug ineffective [None]
  - Intentional underdose [None]

NARRATIVE: CASE EVENT DATE: 201405
